FAERS Safety Report 8381851-8 (Version None)
Quarter: 2012Q2

REPORT INFORMATION
  Report Type: 
  Country: None (occurrence: None)
  Receive Date: 20120522
  Receipt Date: 20120522
  Transmission Date: 20120825
  Serious: Yes (Death)
  Sender: FDA-Public Use
  Company Number: None

PATIENT
  Age: 66 Year
  Sex: Male
  Weight: 90.7194 kg

DRUGS (1)
  1. ZITHROMAX [Suspect]
     Indication: CHEST DISCOMFORT
     Dates: start: 20071221, end: 20071224

REACTIONS (1)
  - DEATH [None]
